FAERS Safety Report 6337477-0 (Version None)
Quarter: 2009Q3

REPORT INFORMATION
  Report Type: 
  Country: None (occurrence: None)
  Receive Date: 20090901
  Receipt Date: 20090901
  Transmission Date: 20100115
  Serious: Yes (Other)
  Sender: FDA-Public Use
  Company Number: None

PATIENT
  Age: 25 Year
  Sex: Female
  Weight: 115.6672 kg

DRUGS (1)
  1. LUPRON [Suspect]
     Indication: ENDOMETRIOSIS
     Dosage: 3. 75 MG QM IM
     Route: 030
     Dates: start: 20090625, end: 20090710

REACTIONS (3)
  - ARTHROPATHY [None]
  - GOUT [None]
  - IMPAIRED WORK ABILITY [None]
